FAERS Safety Report 22291180 (Version 1)
Quarter: 2023Q2

REPORT INFORMATION
  Report Type: Spontaneous
  Country: TR (occurrence: TR)
  Receive Date: 20230506
  Receipt Date: 20230506
  Transmission Date: 20230722
  Serious: Yes (Death, Life-Threatening, Other)
  Sender: FDA-Public Use
  Company Number: TR-MLMSERVICE-20230420-4243169-1

PATIENT
  Age: 47 Year
  Sex: Male

DRUGS (4)
  1. CISPLATIN [Suspect]
     Active Substance: CISPLATIN
     Indication: Signet-ring cell carcinoma
  2. GEMCITABINE [Suspect]
     Active Substance: GEMCITABINE
     Indication: Bladder cancer
  3. GEMCITABINE [Suspect]
     Active Substance: GEMCITABINE
     Indication: Signet-ring cell carcinoma
  4. CISPLATIN [Suspect]
     Active Substance: CISPLATIN
     Indication: Bladder cancer

REACTIONS (2)
  - Febrile neutropenia [Fatal]
  - Pulmonary embolism [Fatal]
